FAERS Safety Report 7827764-9 (Version None)
Quarter: 2011Q4

REPORT INFORMATION
  Report Type: 
  Country: None (occurrence: None)
  Receive Date: 20111017
  Receipt Date: 20111003
  Transmission Date: 20120403
  Serious: Yes (Hospitalization)
  Sender: FDA-Public Use
  Company Number: UTC-010783

PATIENT
  Age: 56 Year
  Sex: Female
  Weight: 46.82 kg

DRUGS (3)
  1. TRACLEER [Concomitant]
  2. REMODULIN [Suspect]
     Indication: COR PULMONALE CHRONIC
     Dosage: 192.96 UG/LKG (0.134 UG/KG, 1 IN 1 MIN), SUBCUTANEOUS
     Route: 058
     Dates: start: 20040505
  3. COUMADIN [Concomitant]

REACTIONS (1)
  - INFUSION SITE INFECTION [None]
